FAERS Safety Report 6770777-9 (Version None)
Quarter: 2010Q2

REPORT INFORMATION
  Report Type: 
  Country: None (occurrence: None)
  Receive Date: 20100520
  Receipt Date: 20091005
  Transmission Date: 20101027
  Serious: Yes (Other)
  Sender: FDA-Public Use
  Company Number: 2009279979

PATIENT
  Age: 60 Year
  Sex: Female
  Weight: 66 kg

DRUGS (11)
  1. PROVERA [Suspect]
     Indication: HORMONE REPLACEMENT THERAPY
     Dosage: ORAL
     Route: 048
     Dates: start: 19980101, end: 20040101
  2. PREMARIN [Suspect]
     Indication: HORMONE REPLACEMENT THERAPY
     Dates: start: 19880101, end: 20040101
  3. PREMPRO [Suspect]
     Indication: HORMONE REPLACEMENT THERAPY
     Dates: start: 20010101, end: 20020101
  4. ROBAXIN [Concomitant]
  5. XANAX [Concomitant]
  6. TOPAMAX [Concomitant]
  7. LEXAPRO [Concomitant]
  8. DARVOCET [Concomitant]
  9. LIDODERM PATCH (LIDOCAINE HYDROCHLORIDE) [Concomitant]
  10. ATENOLOL [Concomitant]
  11. ACTONEL [Concomitant]

REACTIONS (1)
  - BREAST CANCER FEMALE [None]
